FAERS Safety Report 9906328 (Version 1)
Quarter: 2014Q1

REPORT INFORMATION
  Report Type: Spontaneous
  Country: US (occurrence: US)
  Receive Date: 20140218
  Receipt Date: 20140218
  Transmission Date: 20141002
  Serious: No
  Sender: FDA-Public Use
  Company Number: US-BAUSCH-BL-2013-000566

PATIENT
  Sex: Female

DRUGS (2)
  1. NEOMYCIN AND POLYMYXIN B SULFATES AND HYDROCORTISONE OTIC SOLUTION USP [Suspect]
     Indication: CONJUNCTIVITIS
     Dosage: ONE DROP INTO EACH EYE ONCE
     Route: 047
     Dates: start: 20130207, end: 20130207
  2. NEOMYCIN AND POLYMYXIN B SULFATES AND HYDROCORTISONE OTIC SOLUTION USP [Suspect]
     Indication: OFF LABEL USE

REACTIONS (7)
  - Eye irritation [Not Recovered/Not Resolved]
  - Drug administration error [Not Recovered/Not Resolved]
  - Drug prescribing error [Not Recovered/Not Resolved]
  - Instillation site pain [None]
  - Drug dispensing error [None]
  - Wrong drug administered [None]
  - Incorrect route of drug administration [None]
